FAERS Safety Report 10261942 (Version 1)
Quarter: 2014Q2

REPORT INFORMATION
  Report Type: Report from Study
  Country: US (occurrence: US)
  Receive Date: 20140626
  Receipt Date: 20140626
  Transmission Date: 20141212
  Serious: Yes (Hospitalization)
  Sender: FDA-Public Use
  Company Number: US-ACTELION-A-NJ2014-100946

PATIENT
  Age: 77 Year
  Sex: Female

DRUGS (3)
  1. VENTAVIS [Suspect]
     Indication: COR PULMONALE CHRONIC
     Dosage: 5 MCG, 6-9X/DAY
     Route: 055
     Dates: start: 20090730
  2. ADCIRCA [Concomitant]
  3. LETAIRIS [Concomitant]

REACTIONS (1)
  - Fall [Unknown]
